FAERS Safety Report 17694264 (Version 1)
Quarter: 2020Q2

REPORT INFORMATION
  Report Type: Spontaneous
  Country: CH (occurrence: CH)
  Receive Date: 20200422
  Receipt Date: 20200422
  Transmission Date: 20200714
  Serious: Yes (Other)
  Sender: FDA-Public Use
  Company Number: NVSC2020CH104851

PATIENT
  Sex: Female

DRUGS (9)
  1. CARBOPLATIN. [Suspect]
     Active Substance: CARBOPLATIN
     Dosage: 450 MG, CYCLIC
     Route: 042
     Dates: start: 20200208, end: 20200208
  2. CARBOPLATIN. [Suspect]
     Active Substance: CARBOPLATIN
     Dosage: 450 MG, CYCLIC
     Route: 042
     Dates: start: 20190916, end: 20190916
  3. CARBOPLATIN. [Suspect]
     Active Substance: CARBOPLATIN
     Dosage: 450 MG, CYCLIC
     Route: 042
     Dates: start: 20191216, end: 20191216
  4. CARBOPLATIN. [Suspect]
     Active Substance: CARBOPLATIN
     Dosage: 450 MG, CYCLIC
     Route: 042
     Dates: start: 20200114, end: 20200114
  5. CARBOPLATIN. [Suspect]
     Active Substance: CARBOPLATIN
     Dosage: 450 MG, CYCLIC
     Route: 042
     Dates: start: 20191113, end: 20191113
  6. XGEVA [Concomitant]
     Active Substance: DENOSUMAB
     Dosage: 120 MG (EVERY 4-6 WEEKS)
     Route: 058
     Dates: start: 20191203
  7. CARBOPLATIN. [Suspect]
     Active Substance: CARBOPLATIN
     Dosage: 450 MG, CYCLIC
     Route: 042
     Dates: start: 20190819, end: 20190819
  8. CARBOPLATIN. [Suspect]
     Active Substance: CARBOPLATIN
     Dosage: 450 MG, CYCLIC
     Route: 042
     Dates: start: 20191014, end: 20191014
  9. CARBOPLATIN. [Suspect]
     Active Substance: CARBOPLATIN
     Indication: CHOROID MELANOMA
     Dosage: 450 MG, CYCLIC
     Route: 042
     Dates: start: 20190718, end: 20190718

REACTIONS (3)
  - Product use in unapproved indication [Unknown]
  - Malignant neoplasm progression [Unknown]
  - Choroid melanoma [Unknown]
